FAERS Safety Report 8422826-X (Version None)
Quarter: 2012Q2

REPORT INFORMATION
  Report Type: 
  Country: None (occurrence: None)
  Receive Date: 20120608
  Receipt Date: 20120524
  Transmission Date: 20120825
  Serious: No
  Sender: FDA-Public Use
  Company Number: US-ASTRAZENECA-2012SE02206

PATIENT
  Age: 57 Year
  Sex: Female
  Weight: 82.1 kg

DRUGS (7)
  1. FLONASE [Concomitant]
  2. SIMVASTATIN [Concomitant]
     Indication: HYPERLIPIDAEMIA
  3. SINGULAIR [Concomitant]
  4. NEXIUM [Suspect]
     Indication: GASTROOESOPHAGEAL REFLUX DISEASE
     Dosage: ONCE DAILY
     Route: 048
     Dates: start: 20041220
  5. ALPRAZOLAM [Concomitant]
     Indication: ANXIETY
  6. BENAZEPRIL HYDROCHLORIDE [Suspect]
     Indication: HYPERTENSION
     Route: 048
  7. HYDROCHLOROTHIAZIDE [Suspect]
     Indication: HYPERTENSION
     Route: 048

REACTIONS (3)
  - COUGH [None]
  - RASH [None]
  - MULTIPLE ALLERGIES [None]
